FAERS Safety Report 14533744 (Version 1)
Quarter: 2018Q1

REPORT INFORMATION
  Report Type: Spontaneous
  Country: US (occurrence: US)
  Receive Date: 20180215
  Receipt Date: 20180215
  Transmission Date: 20180509
  Serious: Yes (Death, Life-Threatening, Hospitalization, Other)
  Sender: FDA-Public Use
  Company Number: US-ACCORD-063262

PATIENT
  Age: 51 Year
  Sex: Male

DRUGS (1)
  1. AMLODIPINE [Suspect]
     Active Substance: AMLODIPINE BESYLATE
     Dosage: 50 TABLETS (STRENGTH: 10 MG) (TOTAL 500 MG)

REACTIONS (7)
  - Multiple organ dysfunction syndrome [Fatal]
  - Suicide attempt [Fatal]
  - Acidosis [Fatal]
  - Intentional overdose [Fatal]
  - Peripheral ischaemia [Unknown]
  - Pulmonary oedema [Fatal]
  - Cardiac failure [Fatal]
